FAERS Safety Report 20227060 (Version 7)
Quarter: 2022Q3

REPORT INFORMATION
  Report Type: Spontaneous
  Country: US (occurrence: US)
  Receive Date: 20211224
  Receipt Date: 20220920
  Transmission Date: 20221027
  Serious: Yes (Hospitalization, Other)
  Sender: FDA-Public Use
  Company Number: US-GLAXOSMITHKLINE-US2021257829

PATIENT

DRUGS (7)
  1. INFLUENZA VIRUS VACCINE [Suspect]
     Active Substance: INFLUENZA VIRUS VACCINE
     Indication: Prophylaxis
  2. ZEJULA [Suspect]
     Active Substance: NIRAPARIB
     Indication: Ovarian cancer
     Dosage: 100 MG, QD
     Route: 048
     Dates: start: 20210902
  3. ZEJULA [Suspect]
     Active Substance: NIRAPARIB
     Dosage: 100 MG, QD IN EVENING
  4. ZEJULA [Suspect]
     Active Substance: NIRAPARIB
     Dosage: 100 MG, QD
     Route: 048
  5. ZEJULA [Suspect]
     Active Substance: NIRAPARIB
     Dosage: 100
     Route: 048
     Dates: start: 20210902
  6. COVID-19 VACCINE NOS [Suspect]
     Active Substance: COVID-19 VACCINE NOS
     Indication: Prophylaxis
     Dosage: UNK
  7. RUBRACA [Suspect]
     Active Substance: RUCAPARIB CAMSYLATE
     Indication: Ovarian cancer
     Dosage: 200 MG, QD

REACTIONS (21)
  - Neuropathy peripheral [Unknown]
  - Neutrophil count decreased [Not Recovered/Not Resolved]
  - Constipation [Not Recovered/Not Resolved]
  - Pulmonary mass [Not Recovered/Not Resolved]
  - Stenosis [Unknown]
  - Metabolic function test [Unknown]
  - Heart rate increased [Not Recovered/Not Resolved]
  - Blood pressure increased [Unknown]
  - Asthenia [Unknown]
  - Fatigue [Unknown]
  - Weight loss poor [Unknown]
  - Weight fluctuation [Unknown]
  - Metabolic acidosis [Unknown]
  - Glomerular filtration rate decreased [Unknown]
  - Carbohydrate antigen 125 increased [Unknown]
  - Red blood cell count decreased [Unknown]
  - Immune system disorder [Unknown]
  - Emotional disorder [Unknown]
  - Stress [Unknown]
  - Platelet count decreased [Unknown]
  - Insomnia [Not Recovered/Not Resolved]
